FAERS Safety Report 4710864-X (Version None)
Quarter: 2005Q3

REPORT INFORMATION
  Report Type: 
  Country: None (occurrence: None)
  Receive Date: 20050711
  Receipt Date: 20050217
  Transmission Date: 20060218
  Serious: Yes (Hospitalization)
  Sender: FDA-Public Use
  Company Number: FR-GLAXOSMITHKLINE-B0372108A

PATIENT
  Age: 63 Year
  Sex: Male

DRUGS (8)
  1. VENTOLIN [Suspect]
     Route: 055
  2. APRANAX [Suspect]
     Dosage: 1100MG PER DAY
     Route: 048
     Dates: start: 20041122, end: 20041123
  3. DIANTALVIC [Suspect]
     Dosage: 6UNIT PER DAY
     Route: 048
     Dates: start: 20041119, end: 20041123
  4. OMEPRAZOLE [Suspect]
     Dosage: 10MG PER DAY
     Route: 048
     Dates: start: 20041122, end: 20041123
  5. PROFENID [Concomitant]
     Route: 042
     Dates: start: 20041119, end: 20041120
  6. PERFALGAN [Concomitant]
     Route: 042
     Dates: start: 20041119, end: 20041121
  7. TAHOR [Concomitant]
     Dosage: 1UNIT PER DAY
     Route: 048
  8. SERMION [Concomitant]
     Dosage: 2UNIT PER DAY
     Route: 048

REACTIONS (13)
  - ACUTE GENERALISED EXANTHEMATOUS PUSTULOSIS [None]
  - DERMATITIS BULLOUS [None]
  - ERYTHEMA [None]
  - HEPATIC ENZYME INCREASED [None]
  - LEUKOCYTOSIS [None]
  - OEDEMA PERIPHERAL [None]
  - PURPURA [None]
  - RASH MACULO-PAPULAR [None]
  - RASH PUSTULAR [None]
  - RASH SCARLATINIFORM [None]
  - RENAL FAILURE [None]
  - SKIN EXFOLIATION [None]
  - SKIN INFLAMMATION [None]
